FAERS Safety Report 20348488 (Version 2)
Quarter: 2022Q1

REPORT INFORMATION
  Report Type: Other
  Country: CA (occurrence: None)
  Receive Date: 20220119
  Receipt Date: 20220204
  Transmission Date: 20220424
  Serious: No
  Sender: FDA-Public Use
  Company Number: CA-ROCHE-3001970

PATIENT
  Sex: Female

DRUGS (1)
  1. OCREVUS [Suspect]
     Active Substance: OCRELIZUMAB
     Indication: Relapsing-remitting multiple sclerosis
     Dosage: THEN 600 MG EVERY 6 MONTH
     Route: 042
     Dates: start: 20210811

REACTIONS (2)
  - COVID-19 [Recovered/Resolved]
  - Nasopharyngitis [Not Recovered/Not Resolved]
